FAERS Safety Report 7592439-0 (Version None)
Quarter: 2011Q3

REPORT INFORMATION
  Report Type: 
  Country: None (occurrence: None)
  Receive Date: 20110705
  Receipt Date: 20110705
  Transmission Date: 20111222
  Serious: Yes (Other)
  Sender: FDA-Public Use
  Company Number: None

PATIENT
  Sex: Male
  Weight: 97.0698 kg

DRUGS (2)
  1. ZOSYN [Suspect]
     Indication: SUBCUTANEOUS ABSCESS
     Dosage: 3.375GM Q6H IV
     Route: 042
     Dates: start: 20110627, end: 20110630
  2. ZOSYN [Suspect]

REACTIONS (4)
  - ILL-DEFINED DISORDER [None]
  - RASH PRURITIC [None]
  - TREMOR [None]
  - ANXIETY [None]
